FAERS Safety Report 25592106 (Version 2)
Quarter: 2025Q3

REPORT INFORMATION
  Report Type: Report from Study
  Country: US (occurrence: US)
  Receive Date: 20250722
  Receipt Date: 20250725
  Transmission Date: 20251020
  Serious: No
  Sender: ABBVIE
  Company Number: US-ABBVIE-6378132

PATIENT
  Age: 64 Year
  Sex: Male

DRUGS (1)
  1. HUMIRA [Suspect]
     Active Substance: ADALIMUMAB
     Indication: Hidradenitis
     Route: 058
     Dates: start: 2024, end: 202506

REACTIONS (1)
  - Pain [Not Recovered/Not Resolved]

NARRATIVE: CASE EVENT DATE: 20250101
